FAERS Safety Report 18119421 (Version 2)
Quarter: 2024Q1

REPORT INFORMATION
  Report Type: Report from Study
  Country: CO (occurrence: CO)
  Receive Date: 20200806
  Receipt Date: 20240131
  Transmission Date: 20240409
  Serious: Yes (Other)
  Sender: FDA-Public Use
  Company Number: CO-NOVARTISPH-NVSC2020CO218527

PATIENT
  Sex: Female
  Weight: 37 kg

DRUGS (2)
  1. TASIGNA [Suspect]
     Active Substance: NILOTINIB
     Indication: Chronic myeloid leukaemia
     Dosage: 400 MG, BID (2 OF 200, IN THE MORNING AND AT NIGHT)
     Route: 048
     Dates: start: 20180217
  2. TASIGNA [Suspect]
     Active Substance: NILOTINIB
     Dosage: 150 MG, BID (ONE OF 150 MG IN THE MORNING AND ONE OF 150 MG AT NIGHT)
     Route: 065

REACTIONS (5)
  - Multiple sclerosis [Unknown]
  - Pulmonary hypertension [Unknown]
  - Speech disorder [Unknown]
  - Constipation [Unknown]
  - Incorrect dose administered [Unknown]
